FAERS Safety Report 5513005-4 (Version None)
Quarter: 2007Q4

REPORT INFORMATION
  Report Type: 
  Country: None (occurrence: None)
  Receive Date: 20071112
  Receipt Date: 20071103
  Transmission Date: 20080405
  Serious: Yes (Other)
  Sender: FDA-Public Use
  Company Number: US-AVENTIS-200717792US

PATIENT
  Age: 48 Year
  Sex: Male

DRUGS (5)
  1. LANTUS [Suspect]
  2. LEXAPRO [Concomitant]
     Dosage: DOSE: UNK
  3. RISPERDAL [Concomitant]
     Dosage: DOSE: UNK
  4. GLUCOPHAGE [Concomitant]
     Dosage: DOSE: UNK
  5. ANTITHROMBOTIC AGENTS [Concomitant]
     Dosage: DOSE: UNK

REACTIONS (3)
  - GANGRENE [None]
  - STAPHYLOCOCCAL INFECTION [None]
  - TOE AMPUTATION [None]
